FAERS Safety Report 6386868-0 (Version None)
Quarter: 2009Q4

REPORT INFORMATION
  Report Type: 
  Country: None (occurrence: None)
  Receive Date: 20091002
  Receipt Date: 20090923
  Transmission Date: 20100525
  Serious: Yes (Hospitalization)
  Sender: FDA-Public Use
  Company Number: BE-ABBOTT-09P-013-0582061-00

PATIENT
  Sex: Female

DRUGS (16)
  1. HUMIRA [Suspect]
     Indication: ANKYLOSING SPONDYLITIS
     Route: 058
     Dates: start: 20070412
  2. CYMBALTA [Concomitant]
     Indication: DRUG USE FOR UNKNOWN INDICATION
  3. METHOCIOPRAMIDE [Concomitant]
     Indication: DRUG USE FOR UNKNOWN INDICATION
  4. TOLINDOL [Concomitant]
     Indication: DRUG USE FOR UNKNOWN INDICATION
  5. PHARMATON [Concomitant]
     Indication: DRUG USE FOR UNKNOWN INDICATION
  6. B-MAGNUM [Concomitant]
     Indication: DRUG USE FOR UNKNOWN INDICATION
  7. RIVOTRIL [Concomitant]
     Indication: DRUG USE FOR UNKNOWN INDICATION
     Dosage: 0.5CO/DAY
  8. DIAZEPAM [Concomitant]
     Indication: DRUG USE FOR UNKNOWN INDICATION
  9. AGIOLAX [Concomitant]
     Indication: DRUG USE FOR UNKNOWN INDICATION
  10. LASIX [Concomitant]
     Indication: DRUG USE FOR UNKNOWN INDICATION
  11. SOSTILAR [Concomitant]
     Indication: DRUG USE FOR UNKNOWN INDICATION
     Dosage: 0.5MG ON MON AND FRI
     Dates: start: 20090201
  12. HYDROCORTISONE [Concomitant]
     Indication: DRUG USE FOR UNKNOWN INDICATION
     Dosage: 1.5CO/DAY
  13. MAREVAN [Concomitant]
     Indication: DRUG USE FOR UNKNOWN INDICATION
  14. AVAMYS NOSESPRAY [Concomitant]
     Indication: DRUG USE FOR UNKNOWN INDICATION
  15. MATRIFEN [Concomitant]
     Indication: DRUG USE FOR UNKNOWN INDICATION
  16. PRANOX [Concomitant]
     Indication: DRUG USE FOR UNKNOWN INDICATION

REACTIONS (8)
  - BLOOD PROLACTIN INCREASED [None]
  - CONSTIPATION [None]
  - FATIGUE [None]
  - FUNGAL INFECTION [None]
  - MENSTRUAL DISORDER [None]
  - PULMONARY EMBOLISM [None]
  - SOMNOLENCE [None]
  - WEIGHT INCREASED [None]
